FAERS Safety Report 17579976 (Version 7)
Quarter: 2022Q3

REPORT INFORMATION
  Report Type: Report from Study
  Country: CA (occurrence: CA)
  Receive Date: 20200325
  Receipt Date: 20220902
  Transmission Date: 20221026
  Serious: Yes (Other)
  Sender: FDA-Public Use
  Company Number: CA-JNJFOC-20200328820

PATIENT
  Age: 34 Year
  Sex: Male
  Weight: 104.5 kg

DRUGS (2)
  1. REMICADE [Suspect]
     Active Substance: INFLIXIMAB
     Indication: Colitis ulcerative
     Route: 042
     Dates: start: 20130731, end: 2020
  2. REMICADE [Suspect]
     Active Substance: INFLIXIMAB
     Dosage: REINITIATING REMICADE (MORE THAN 10MG/KG EVERY 6 WEEKS)?ON 09-MAR-2022, PATIENT RECEIVED 59TH INFUSI
     Route: 042
     Dates: start: 20220309

REACTIONS (4)
  - Lupus-like syndrome [Not Recovered/Not Resolved]
  - Colitis ulcerative [Not Recovered/Not Resolved]
  - Decreased appetite [Unknown]
  - Loss of therapeutic response [Unknown]

NARRATIVE: CASE EVENT DATE: 20220101
